FAERS Safety Report 7651009-6 (Version None)
Quarter: 2011Q3

REPORT INFORMATION
  Report Type: 
  Country: None (occurrence: None)
  Receive Date: 20110802
  Receipt Date: 20110726
  Transmission Date: 20111222
  Serious: Yes (Other)
  Sender: FDA-Public Use
  Company Number: BR-BAYER-2011-065082

PATIENT
  Sex: Female

DRUGS (2)
  1. AVELOX [Suspect]
     Indication: SINUSITIS
  2. AVELOX [Suspect]
     Indication: PULMONARY CONGESTION

REACTIONS (5)
  - DIARRHOEA [None]
  - URINARY RETENTION [None]
  - LIVER DISORDER [None]
  - ABDOMINAL PAIN UPPER [None]
  - UNEVALUABLE EVENT [None]
